FAERS Safety Report 4800694-2 (Version None)
Quarter: 2005Q4

REPORT INFORMATION
  Report Type: 
  Country: None (occurrence: None)
  Receive Date: 20051017
  Receipt Date: 20051006
  Transmission Date: 20060501
  Serious: Yes (Hospitalization, Disabling)
  Sender: FDA-Public Use
  Company Number: US-MERCK-0510USA05959

PATIENT
  Age: 51 Year
  Sex: Male
  Weight: 70 kg

DRUGS (7)
  1. VIOXX [Suspect]
     Indication: MUSCLE SPASMS
     Route: 048
     Dates: start: 20010101, end: 20030323
  2. ZOCOR [Concomitant]
     Route: 048
  3. METOPROLOL [Concomitant]
     Route: 065
  4. PROTONIX [Concomitant]
     Route: 065
  5. PLAVIX [Concomitant]
     Route: 065
  6. ALTACE [Concomitant]
     Route: 065
  7. DIOVAN [Concomitant]
     Route: 048

REACTIONS (7)
  - CAROTID ARTERY STENOSIS [None]
  - CHEST PAIN [None]
  - HYPERTENSION [None]
  - MYOCARDIAL INFARCTION [None]
  - NEURALGIA [None]
  - PAIN IN JAW [None]
  - TENDONITIS [None]
